FAERS Safety Report 4855801-2 (Version None)
Quarter: 2005Q4

REPORT INFORMATION
  Report Type: 
  Country: None (occurrence: None)
  Receive Date: 20051215
  Receipt Date: 20051215
  Transmission Date: 20060501
  Serious: No
  Sender: FDA-Public Use
  Company Number: None

PATIENT

DRUGS (1)
  1. DIPYRIDAMOLE [Suspect]
     Indication: CARDIAC STRESS TEST
     Dates: start: 20051101, end: 20051212

REACTIONS (2)
  - BURNING SENSATION [None]
  - PAIN [None]
